FAERS Safety Report 4305065-3 (Version None)
Quarter: 2004Q1

REPORT INFORMATION
  Report Type: 
  Country: None (occurrence: None)
  Receive Date: 20040224
  Receipt Date: 20040211
  Transmission Date: 20041129
  Serious: Yes (Hospitalization)
  Sender: FDA-Public Use
  Company Number: ES-SHR-04-021405

PATIENT
  Age: 79 Year
  Sex: Female

DRUGS (1)
  1. FLUDARA [Suspect]
     Indication: CHRONIC LYMPHOCYTIC LEUKAEMIA
     Dosage: 25 MG/M2, CYCLE X 5D, MONTHLY X4,  INTRAVENOUS
     Route: 042
     Dates: start: 20020201

REACTIONS (5)
  - AUTOIMMUNE THROMBOCYTOPENIA [None]
  - EPISTAXIS [None]
  - HAEMOGLOBIN DECREASED [None]
  - PETECHIAE [None]
  - THROMBOCYTOPENIA [None]
